FAERS Safety Report 5647837-9 (Version None)
Quarter: 2008Q1

REPORT INFORMATION
  Report Type: 
  Country: None (occurrence: None)
  Receive Date: 20080303
  Receipt Date: 20080107
  Transmission Date: 20080703
  Serious: No
  Sender: FDA-Public Use
  Company Number: US-BOEHRINGER INGELHEIM GMBH, GERMANY-2007-BP-25467BP

PATIENT
  Sex: Male

DRUGS (3)
  1. FLOMAX [Suspect]
     Indication: BENIGN PROSTATIC HYPERPLASIA
     Route: 048
     Dates: start: 20060101
  2. LORATADINE [Suspect]
     Indication: MULTIPLE ALLERGIES
     Route: 048
  3. ACETAMINOPHEN [Suspect]
     Indication: ARTHRALGIA

REACTIONS (4)
  - DRUG INTERACTION [None]
  - POLLAKIURIA [None]
  - THERAPEUTIC RESPONSE DECREASED [None]
  - URINARY RETENTION [None]
